FAERS Safety Report 8451496-X (Version None)
Quarter: 2012Q2

REPORT INFORMATION
  Report Type: 
  Country: None (occurrence: None)
  Receive Date: 20120620
  Receipt Date: 20120305
  Transmission Date: 20120825
  Serious: No
  Sender: FDA-Public Use
  Company Number: US-VERTEX PHARMACEUTICALS INC.-AE-2012-003160

PATIENT
  Sex: Male
  Weight: 95.34 kg

DRUGS (12)
  1. INCIVEK [Suspect]
     Indication: HEPATITIS C
     Route: 048
     Dates: start: 20120305
  2. RIBAVIRIN [Concomitant]
     Indication: HEPATITIS C
     Route: 048
     Dates: start: 20120305
  3. BENICAR [Concomitant]
     Indication: HYPERTENSION
     Route: 048
  4. MONOPRIL [Concomitant]
     Indication: HYPERTENSION
     Route: 048
  5. FUROSEMIDE [Concomitant]
     Indication: HYPERTENSION
     Route: 048
  6. KLOR-CON [Concomitant]
     Route: 048
  7. TENEX [Concomitant]
     Indication: HYPERTENSION
     Route: 048
  8. HYDROCODONE [Concomitant]
     Indication: PAIN
     Route: 048
  9. HIGH BLOOD PRESSURE MEDICATIONS [Concomitant]
     Indication: HYPERTENSION
     Route: 048
  10. ALLEGRA [Concomitant]
     Indication: HYPERSENSITIVITY
     Route: 048
  11. PEGASYS [Concomitant]
     Indication: HEPATITIS C
     Dates: start: 20120304
  12. ALLOPURINOL [Concomitant]
     Indication: GOUT
     Route: 048

REACTIONS (1)
  - DRUG DOSE OMISSION [None]
